FAERS Safety Report 10367180 (Version 1)
Quarter: 2014Q3

REPORT INFORMATION
  Report Type: Spontaneous
  Country: US (occurrence: None)
  Receive Date: 20140805
  Receipt Date: 20140805
  Transmission Date: 20150326
  Serious: No
  Sender: FDA-Public Use
  Company Number: None

PATIENT
  Age: 78 Year
  Sex: Female
  Weight: 88 kg

DRUGS (5)
  1. CEFTIN [Suspect]
     Active Substance: CEFUROXIME AXETIL
     Indication: PNEUMONIA
     Route: 048
     Dates: start: 20140715, end: 20140716
  2. ATENOLOL/CHLORTH [Concomitant]
  3. PRADAXA [Concomitant]
     Active Substance: DABIGATRAN ETEXILATE MESYLATE
  4. POTASSIUM CL ER [Concomitant]
  5. GEMFIBROZIL. [Concomitant]
     Active Substance: GEMFIBROZIL

REACTIONS (2)
  - Rash [None]
  - Pruritus [None]

NARRATIVE: CASE EVENT DATE: 20140716
